FAERS Safety Report 23703367 (Version 4)
Quarter: 2024Q2

REPORT INFORMATION
  Report Type: Spontaneous
  Country: US (occurrence: US)
  Receive Date: 20240403
  Receipt Date: 20240501
  Transmission Date: 20240716
  Serious: No
  Sender: FDA-Public Use
  Company Number: US-PFIZER INC-202400069904

PATIENT
  Age: 31 Year
  Sex: Female

DRUGS (1)
  1. DEPO-PROVERA [Suspect]
     Active Substance: MEDROXYPROGESTERONE ACETATE
     Indication: Contraception
     Dosage: 104MG, ONE SHOT EVERY 12 TO 13 WEEKS

REACTIONS (4)
  - Product administration error [Unknown]
  - Liquid product physical issue [Unknown]
  - Device leakage [Unknown]
  - Device occlusion [Unknown]
